FAERS Safety Report 23962675 (Version 2)
Quarter: 2025Q1

REPORT INFORMATION
  Report Type: Spontaneous
  Country: US (occurrence: None)
  Receive Date: 20240611
  Receipt Date: 20250311
  Transmission Date: 20250409
  Serious: No
  Sender: INCYTE
  Company Number: US-INCYTE CORPORATION-2024IN005816

PATIENT

DRUGS (2)
  1. OPZELURA [Suspect]
     Active Substance: RUXOLITINIB PHOSPHATE
     Indication: Vitiligo
     Dosage: 60 GRAM, BID
  2. OPZELURA [Suspect]
     Active Substance: RUXOLITINIB PHOSPHATE
     Dosage: UNK, BID

REACTIONS (1)
  - Drug ineffective [Unknown]
